FAERS Safety Report 6172904-3 (Version None)
Quarter: 2009Q2

REPORT INFORMATION
  Report Type: 
  Country: None (occurrence: None)
  Receive Date: 20090430
  Receipt Date: 20090420
  Transmission Date: 20091009
  Serious: Yes (Other)
  Sender: FDA-Public Use
  Company Number: PHHY2009NZ14820

PATIENT
  Sex: Male

DRUGS (2)
  1. CLOZARIL [Suspect]
     Indication: SCHIZOPHRENIA
     Dosage: 600 MG IN 3 SPLIT DOSES
     Route: 048
     Dates: start: 20050101
  2. ATROPINE [Concomitant]
     Indication: SALIVARY HYPERSECRETION
     Dosage: UNK

REACTIONS (6)
  - ABDOMINAL PAIN [None]
  - ANTIPSYCHOTIC DRUG LEVEL INCREASED [None]
  - BLOOD ELASTASE [None]
  - HALLUCINATION, AUDITORY [None]
  - PORPHYRIA [None]
  - WEIGHT DECREASED [None]
